FAERS Safety Report 6874551-4 (Version None)
Quarter: 2010Q3

REPORT INFORMATION
  Report Type: 
  Country: None (occurrence: None)
  Receive Date: 20100722
  Receipt Date: 20100716
  Transmission Date: 20110219
  Serious: Yes (Hospitalization)
  Sender: FDA-Public Use
  Company Number: WAES 1003USA00795

PATIENT
  Age: 56 Year
  Sex: Male

DRUGS (7)
  1. VYTORIN [Suspect]
     Indication: ACUTE CORONARY SYNDROME
     Dosage: 10/40 MG/DAILY
     Route: 048
     Dates: start: 20071206
  2. PLACEBO (UNSPECIFIED) [Suspect]
     Indication: ACUTE CORONARY SYNDROME
     Route: 048
     Dates: start: 20071206
  3. PLACEBO (UNSPECIFIED) UNK [Suspect]
     Indication: ACUTE CORONARY SYNDROME
     Route: 048
     Dates: start: 20071206
  4. ASACOL [Concomitant]
  5. ASPIRIN [Concomitant]
  6. CANDESARTAN [Concomitant]
  7. FELODIPINE [Concomitant]

REACTIONS (1)
  - NEPHROLITHIASIS [None]
